FAERS Safety Report 6336823-1 (Version None)
Quarter: 2009Q3

REPORT INFORMATION
  Report Type: 
  Country: None (occurrence: None)
  Receive Date: 20090831
  Receipt Date: 20090831
  Transmission Date: 20100115
  Serious: No
  Sender: FDA-Public Use
  Company Number: None

PATIENT
  Age: 64 Year
  Sex: Female
  Weight: 71.6683 kg

DRUGS (2)
  1. FOSAMAX [Suspect]
     Indication: OSTEOPENIA
     Dosage: 1 TABLET 1 X WEEK PO
     Route: 048
  2. BONIVA [Suspect]
     Indication: OSTEOPENIA
     Dosage: 1 TABLET 1 X A MONTH PO TWO TO THREE YEARS
     Route: 048

REACTIONS (8)
  - ARTHRALGIA [None]
  - BACK DISORDER [None]
  - DYSSTASIA [None]
  - FEAR [None]
  - MUSCULOSKELETAL STIFFNESS [None]
  - PAIN [None]
  - PAIN IN EXTREMITY [None]
  - TRIGGER FINGER [None]
